FAERS Safety Report 15488579 (Version 1)
Quarter: 2018Q4

REPORT INFORMATION
  Report Type: Spontaneous
  Country: US (occurrence: US)
  Receive Date: 20181011
  Receipt Date: 20181011
  Transmission Date: 20190205
  Serious: No
  Sender: FDA-Public Use
  Company Number: US-PFIZER INC-2018404641

PATIENT
  Age: 14 Year
  Sex: Female

DRUGS (1)
  1. GENOTROPIN [Suspect]
     Active Substance: SOMATROPIN
     Dosage: 2.2 MG, UNK (6 DAYS A WEEK)
     Dates: start: 20180422

REACTIONS (6)
  - Aspartate aminotransferase increased [Unknown]
  - Vitamin D decreased [Unknown]
  - Blood phosphorus increased [Unknown]
  - Alanine aminotransferase increased [Unknown]
  - Blood potassium decreased [Unknown]
  - Blood glucose increased [Unknown]

NARRATIVE: CASE EVENT DATE: 20180529
